FAERS Safety Report 6416218-2 (Version None)
Quarter: 2009Q4

REPORT INFORMATION
  Report Type: 
  Country: None (occurrence: None)
  Receive Date: 20091027
  Receipt Date: 20091015
  Transmission Date: 20100525
  Serious: Yes (Other)
  Sender: FDA-Public Use
  Company Number: ES-PFIZER INC-2008012550

PATIENT
  Age: 35 Year

DRUGS (4)
  1. TRANKIMAZIN [Suspect]
     Route: 048
     Dates: start: 20030101
  2. TRANKIMAZIN RETARD [Suspect]
     Indication: MEIGE'S SYNDROME
  3. TARDYFERON [Concomitant]
  4. MULTI-VITAMINS [Concomitant]

REACTIONS (9)
  - BLOOD PRESSURE DIASTOLIC INCREASED [None]
  - CAESAREAN SECTION [None]
  - DISORIENTATION [None]
  - DIZZINESS [None]
  - DRUG EXPOSURE DURING PREGNANCY [None]
  - DRUG WITHDRAWAL SYNDROME [None]
  - HEADACHE [None]
  - PLACENTA PRAEVIA [None]
  - TACHYCARDIA [None]
